FAERS Safety Report 8905778 (Version 1)
Quarter: 2012Q4

REPORT INFORMATION
  Report Type: 
  Country: US (occurrence: US)
  Receive Date: 20121109
  Receipt Date: 20121109
  Transmission Date: 20130627
  Serious: No
  Sender: FDA-Public Use
  Company Number: US-VERTEX PHARMACEUTICAL INC.-2012-024274

PATIENT
  Age: 62 Year
  Sex: Female
  Weight: 77 kg

DRUGS (18)
  1. TELAPREVIR [Suspect]
     Indication: HEPATITIS C
     Dosage: 750 mg, tid
     Route: 048
  2. PEGASYS [Suspect]
     Indication: HEPATITIS C
     Route: 058
  3. RIBAPAK [Suspect]
     Indication: HEPATITIS C
     Dosage: 1200 UNK, qd
     Route: 048
  4. ZETIA [Concomitant]
     Dosage: 10 mg, UNK
     Route: 048
  5. PLAVIX [Concomitant]
     Dosage: 300 mg, UNK
     Route: 048
  6. FUROSEMIDE [Concomitant]
     Dosage: 20 mg, UNK
  7. POTASSIUM CHLORIDE [Concomitant]
     Dosage: 8 mEq, UNK
  8. METOPROLOL [Concomitant]
     Dosage: 50 mg, UNK
  9. ASPIRIN [Concomitant]
     Dosage: 81 mg, UNK
  10. ERYTHROMYCIN [Concomitant]
     Dosage: 333 mg, UNK
  11. PROTONIX [Concomitant]
     Dosage: 40 mg, UNK
  12. PHENERGAN                          /00033001/ [Concomitant]
     Dosage: 25 mg, UNK
     Route: 048
  13. JANUMET [Concomitant]
     Dosage: UNK
     Route: 048
  14. EFFEXOR [Concomitant]
     Dosage: 100 mg, UNK
     Route: 048
  15. CARAFATE [Concomitant]
     Dosage: 1 UNK, UNK
     Route: 048
  16. BENADRYL                           /00000402/ [Concomitant]
     Dosage: 25 mg, UNK
     Route: 048
  17. CENTRUM SILVER                     /01292501/ [Concomitant]
     Route: 048
  18. LAXATIVE [Concomitant]

REACTIONS (4)
  - Injection site erythema [Recovered/Resolved]
  - Influenza like illness [Unknown]
  - Nausea [Unknown]
  - Vomiting [Unknown]
